FAERS Safety Report 12609659 (Version 1)
Quarter: 2016Q3

REPORT INFORMATION
  Report Type: Spontaneous
  Country: US (occurrence: US)
  Receive Date: 20160801
  Receipt Date: 20160801
  Transmission Date: 20161109
  Serious: Yes (Congenital Anomaly, Other)
  Sender: FDA-Public Use
  Company Number: PHHY2015US128486

PATIENT
  Sex: Female

DRUGS (1)
  1. ONDANSETRON HYDROCHLORIDE. [Suspect]
     Active Substance: ONDANSETRON HYDROCHLORIDE
     Indication: FOETAL EXPOSURE DURING PREGNANCY
     Dosage: MOTHER^S DOSE: 4 MG, THRICE A DAY (TID)
     Route: 064

REACTIONS (3)
  - Cardiac septal defect [Unknown]
  - Foetal exposure during pregnancy [Unknown]
  - Congenital anomaly [Unknown]
